FAERS Safety Report 7047326-3 (Version None)
Quarter: 2010Q4

REPORT INFORMATION
  Report Type: 
  Country: None (occurrence: None)
  Receive Date: 20101015
  Receipt Date: 20101005
  Transmission Date: 20110411
  Serious: Yes (Other)
  Sender: FDA-Public Use
  Company Number: PHHY2010JP43415

PATIENT
  Age: 59 Year
  Sex: Male

DRUGS (2)
  1. DESFERAL [Suspect]
     Indication: CORNEAL OPACITY
     Route: 061
  2. DESFERAL [Suspect]
     Indication: HETEROCHROMIA IRIDIS

REACTIONS (4)
  - METALLOSIS OF GLOBE [None]
  - RETINAL DISORDER [None]
  - RETINOGRAM ABNORMAL [None]
  - VISUAL ACUITY REDUCED [None]
